FAERS Safety Report 24385916 (Version 1)
Quarter: 2024Q4

REPORT INFORMATION
  Report Type: Spontaneous
  Country: CH (occurrence: CH)
  Receive Date: 20241001
  Receipt Date: 20241001
  Transmission Date: 20250114
  Serious: Yes (Hospitalization)
  Sender: ELI LILLY AND CO
  Company Number: None

PATIENT
  Age: 88 Year
  Sex: Female
  Weight: 44 kg

DRUGS (11)
  1. TERIPARATIDE [Suspect]
     Active Substance: TERIPARATIDE
     Indication: Osteoporosis
     Dosage: .02 MG, UNK
     Route: 058
     Dates: start: 20231107, end: 20240721
  2. TERIPARATIDE [Suspect]
     Active Substance: TERIPARATIDE
     Dosage: .02 MG, UNK
     Route: 058
     Dates: start: 20240731
  3. ERGOCALCIFEROL [Suspect]
     Active Substance: ERGOCALCIFEROL
     Indication: Osteoporosis
     Dosage: 5000 INTERNATIONAL UNIT, DAILY
     Route: 048
     Dates: end: 20240721
  4. CALCIUM\CHOLECALCIFEROL [Suspect]
     Active Substance: CALCIUM\CHOLECALCIFEROL
     Indication: Osteoporosis
     Dosage: UNK UNK, UNKNOWN
     Route: 048
     Dates: end: 20240722
  5. DENOSUMAB [Concomitant]
     Active Substance: DENOSUMAB
     Indication: Product used for unknown indication
     Dosage: UNK, UNKNOWN
     Route: 065
     Dates: start: 20240727
  6. TERIPARATIDE [Concomitant]
     Active Substance: TERIPARATIDE
     Indication: Product used for unknown indication
     Dosage: 0.02 MG, UNKNOWN
     Route: 058
     Dates: start: 20231107, end: 20240722
  7. TERIPARATIDE [Concomitant]
     Active Substance: TERIPARATIDE
     Dosage: 0.02 UNK, UNKNOWN
     Route: 058
     Dates: start: 20240731
  8. PERINDOPRIL [Concomitant]
     Active Substance: PERINDOPRIL
     Dosage: UNK, UNKNOWN
     Route: 065
  9. DAPAGLIFLOZIN [Concomitant]
     Active Substance: DAPAGLIFLOZIN
     Dosage: UNK, UNKNOWN
     Route: 065
  10. XARELTO [Concomitant]
     Active Substance: RIVAROXABAN
     Dosage: UNK, UNKNOWN
     Route: 065
  11. BISOPROLOL [Concomitant]
     Active Substance: BISOPROLOL\BISOPROLOL FUMARATE
     Dosage: UNK, UNKNOWN
     Route: 065

REACTIONS (3)
  - Hypervitaminosis [Not Recovered/Not Resolved]
  - Therapeutic product effect increased [Unknown]
  - Hypercalcaemia [Recovered/Resolved]

NARRATIVE: CASE EVENT DATE: 20240722
